FAERS Safety Report 24868638 (Version 1)
Quarter: 2025Q1

REPORT INFORMATION
  Report Type: Spontaneous
  Country: US (occurrence: None)
  Receive Date: 20250117
  Receipt Date: 20250117
  Transmission Date: 20250408
  Serious: Yes (Hospitalization)
  Sender: FDA-CTU
  Company Number: None

PATIENT
  Age: 60 Year
  Sex: Female
  Weight: 53.1 kg

DRUGS (2)
  1. XELODA [Suspect]
     Active Substance: CAPECITABINE
     Indication: Anal squamous cell carcinoma
     Route: 048
     Dates: start: 20241217, end: 20250113
  2. MITOMYCIN C [Suspect]
     Active Substance: MITOMYCIN
     Indication: Anal squamous cell carcinoma
     Route: 042
     Dates: start: 20241217, end: 20241217

REACTIONS (11)
  - Enteritis [None]
  - Small intestinal obstruction [None]
  - Electrocardiogram QT prolonged [None]
  - Hyponatraemia [None]
  - Hypokalaemia [None]
  - Alanine aminotransferase increased [None]
  - Leukopenia [None]
  - Thrombocytopenia [None]
  - Neutropenia [None]
  - Urine analysis abnormal [None]
  - Laboratory test interference [None]

NARRATIVE: CASE EVENT DATE: 20250116
